FAERS Safety Report 10409766 (Version 4)
Quarter: 2014Q4

REPORT INFORMATION
  Report Type: Report from Study
  Country: US (occurrence: US)
  Receive Date: 20140826
  Receipt Date: 20141211
  Transmission Date: 20150528
  Serious: Yes (Hospitalization)
  Sender: FDA-Public Use
  Company Number: US-BAYER-2014-043020

PATIENT
  Age: 85 Year
  Sex: Female

DRUGS (3)
  1. ADEMPAS [Suspect]
     Active Substance: RIOCIGUAT
     Indication: PULMONARY ARTERIAL HYPERTENSION
     Dosage: 2 MG, TID
     Route: 048
     Dates: start: 20140228
  2. ADEMPAS [Suspect]
     Active Substance: RIOCIGUAT
     Indication: PULMONARY ARTERIAL HYPERTENSION
     Dosage: 1 MG, TID
     Route: 048
     Dates: start: 20140303
  3. ADEMPAS [Suspect]
     Active Substance: RIOCIGUAT
     Indication: PULMONARY ARTERIAL HYPERTENSION
     Dosage: 2.5 MG, TID
     Route: 048
     Dates: start: 20140303

REACTIONS (14)
  - Abdominal distension [Recovering/Resolving]
  - Hypotension [None]
  - Asthenia [Recovering/Resolving]
  - Heart rate increased [Not Recovered/Not Resolved]
  - Fatigue [None]
  - Abdominal pain upper [Recovering/Resolving]
  - Vomiting [Recovering/Resolving]
  - Dyspnoea exertional [Not Recovered/Not Resolved]
  - Drug dose omission [Unknown]
  - Dizziness postural [None]
  - Neuralgia [None]
  - Diarrhoea [Recovering/Resolving]
  - Dizziness [None]
  - Feeling abnormal [None]

NARRATIVE: CASE EVENT DATE: 20140806
